FAERS Safety Report 9197101 (Version 2)
Quarter: 2013Q2

REPORT INFORMATION
  Report Type: Report from Study
  Country: FR (occurrence: FR)
  Receive Date: 20130328
  Receipt Date: 20130405
  Transmission Date: 20140414
  Serious: Yes (Hospitalization, Disabling)
  Sender: FDA-Public Use
  Company Number: FR-ROCHE-1205525

PATIENT
  Age: 78 Year
  Sex: Male

DRUGS (15)
  1. BEVACIZUMAB [Suspect]
     Indication: COLON CANCER
     Dosage: LAST DOSE ADMINISTERED WAS 340 MG ON: 27/APR/2012
     Route: 065
  2. BEVACIZUMAB [Suspect]
     Indication: RECTAL CANCER
     Dosage: LAST DOSE ADMINISTERED WAS 325 MG ON: 25/MAY/2012
     Route: 065
  3. IRINOTECAN [Suspect]
     Indication: COLON CANCER
     Dosage: LAST DOSE ADMINISTERED WAS 245 MG ON 27/APR/2012
     Route: 065
  4. IRINOTECAN [Suspect]
     Indication: RECTAL CANCER
     Dosage: LAST DOSE ADMINISTERED WAS 240 MG ON 25/MAY/2012
     Route: 065
  5. FOLINIC ACID [Suspect]
     Indication: COLON CANCER
     Dosage: LAST DOSE ADMINISTERED WAS 364 MG ON: 27/APR/2012
     Route: 065
  6. FOLINIC ACID [Suspect]
     Indication: RECTAL CANCER
     Dosage: LAST DOSE ADMINISTERED WAS 356 MG ON: 25/MAY/2012
     Route: 065
  7. 5-FU [Suspect]
     Indication: COLON CANCER
     Dosage: LAST DOSE ADMINISTERED WAS 546 MG ON: 27/APR/2012
     Route: 040
  8. 5-FU [Suspect]
     Indication: RECTAL CANCER
     Dosage: LAST DOSE ADMINISTERED WAS 3276 MG ON: 27/APR/2012
     Route: 065
  9. 5-FU [Suspect]
     Dosage: LAST DOSE ADMINISTERED WAS 534 MG ON: 25/MAY/2012
     Route: 040
  10. 5-FU [Suspect]
     Dosage: LAST DOSE ADMINISTERED WAS 3209 MG ON: 25/MAY/2012
     Route: 065
  11. OXYCONTIN [Concomitant]
     Indication: BONE PAIN
     Route: 065
     Dates: start: 20120413
  12. OXYNORM [Concomitant]
     Indication: BONE PAIN
     Route: 065
     Dates: start: 20120413
  13. OXYNORM [Concomitant]
     Route: 065
  14. OXYNORM [Concomitant]
     Route: 065
  15. SOLUPRED (FRANCE) [Concomitant]
     Route: 065
     Dates: start: 20120525, end: 20120531

REACTIONS (2)
  - Lung disorder [Recovered/Resolved]
  - General physical health deterioration [Recovered/Resolved]
